FAERS Safety Report 7221998-2 (Version None)
Quarter: 2011Q1

REPORT INFORMATION
  Report Type: 
  Country: None (occurrence: None)
  Receive Date: 20110112
  Receipt Date: 20110104
  Transmission Date: 20110831
  Serious: Yes (Hospitalization, Other)
  Sender: FDA-Public Use
  Company Number: CH-ASTRAZENECA-2011SE00660

PATIENT
  Age: 63 Year
  Sex: Male
  Weight: 60 kg

DRUGS (2)
  1. CASODEX [Suspect]
     Indication: PROSTATE CANCER
     Route: 048
     Dates: start: 20010301
  2. ZOLADEX [Concomitant]
     Indication: PROSTATE CANCER
     Dosage: 3.6 MG 1 PER 28 DAYS
     Route: 058
     Dates: start: 19990101

REACTIONS (5)
  - DECREASED APPETITE [None]
  - HEPATIC CIRRHOSIS [None]
  - ASCITES [None]
  - JAUNDICE [None]
  - FATIGUE [None]
